FAERS Safety Report 4631442-7 (Version None)
Quarter: 2005Q2

REPORT INFORMATION
  Report Type: 
  Country: None (occurrence: None)
  Receive Date: 20050407
  Receipt Date: 20050331
  Transmission Date: 20051028
  Serious: Yes (Other)
  Sender: FDA-Public Use
  Company Number: 163-20785-04020714

PATIENT
  Age: 49 Year
  Sex: Female

DRUGS (1)
  1. THALOMID [Suspect]
     Indication: MULTIPLE MYELOMA
     Dosage: 200 MG, DAILY, ORAL
     Route: 048
     Dates: start: 20031013

REACTIONS (7)
  - BLOOD ALBUMIN DECREASED [None]
  - BLOOD GLUCOSE INCREASED [None]
  - BONE MARROW TRANSPLANT [None]
  - PLATELET COUNT INCREASED [None]
  - PROTEIN TOTAL INCREASED [None]
  - UNEVALUABLE EVENT [None]
  - WHITE BLOOD CELL COUNT INCREASED [None]
